FAERS Safety Report 10181930 (Version 2)
Quarter: 2014Q3

REPORT INFORMATION
  Report Type: Spontaneous
  Country: US (occurrence: US)
  Receive Date: 20140519
  Receipt Date: 20140825
  Transmission Date: 20150326
  Serious: Yes (Other)
  Sender: FDA-Public Use
  Company Number: US-GILEAD-2014-0102644

PATIENT
  Age: 63 Year
  Sex: Female

DRUGS (4)
  1. ADCIRCA [Concomitant]
     Active Substance: TADALAFIL
  2. LETAIRIS [Suspect]
     Active Substance: AMBRISENTAN
     Indication: PULMONARY HYPERTENSION
     Dosage: 10 MG, QD
     Route: 065
     Dates: start: 20140206
  3. LETAIRIS [Suspect]
     Active Substance: AMBRISENTAN
     Indication: UNEVALUABLE EVENT
  4. LETAIRIS [Suspect]
     Active Substance: AMBRISENTAN
     Indication: SJOGREN^S SYNDROME

REACTIONS (1)
  - Subcutaneous abscess [Unknown]

NARRATIVE: CASE EVENT DATE: 20140511
